FAERS Safety Report 6134509-X (Version None)
Quarter: 2009Q1

REPORT INFORMATION
  Report Type: 
  Country: None (occurrence: None)
  Receive Date: 20090327
  Receipt Date: 20090318
  Transmission Date: 20090719
  Serious: Yes (Hospitalization)
  Sender: FDA-Public Use
  Company Number: FR-ASTRAZENECA-2008CG01602

PATIENT
  Age: 22863 Day
  Sex: Female
  Weight: 70 kg

DRUGS (2)
  1. CRESTOR [Suspect]
     Indication: HYPERCHOLESTEROLAEMIA
     Route: 048
     Dates: start: 20080916, end: 20080929
  2. EXFORGE [Suspect]
     Indication: HYPERTENSION
     Dosage: 10 + 160 MG ONCE DAILY
     Route: 048
     Dates: start: 20080916, end: 20080929

REACTIONS (1)
  - STEVENS-JOHNSON SYNDROME [None]
